FAERS Safety Report 12978717 (Version 1)
Quarter: 2016Q4

REPORT INFORMATION
  Report Type: Spontaneous
  Country: DE (occurrence: DE)
  Receive Date: 20161128
  Receipt Date: 20161128
  Transmission Date: 20170207
  Serious: Yes (Death, Hospitalization)
  Sender: FDA-Public Use
  Company Number: DE-ELI_LILLY_AND_COMPANY-DE201611007539

PATIENT
  Age: 55 Year
  Sex: Male

DRUGS (8)
  1. TAVOR (LORAZEPAM) [Concomitant]
     Active Substance: LORAZEPAM
     Indication: PRODUCT USED FOR UNKNOWN INDICATION
     Dosage: 1.5 MG, UNKNOWN
     Route: 048
     Dates: start: 20160222, end: 20160222
  2. CEFACLOR. [Suspect]
     Active Substance: CEFACLOR
     Dosage: 1500 MG, UNKNOWN
     Route: 048
     Dates: start: 20160223
  3. TAVOR (LORAZEPAM) [Concomitant]
     Active Substance: LORAZEPAM
     Dosage: 3 MG, UNKNOWN
     Route: 048
     Dates: start: 20160223
  4. ZYPREXA [Suspect]
     Active Substance: OLANZAPINE
     Dosage: 10 MG, UNKNOWN
     Route: 048
     Dates: start: 20160223, end: 20160224
  5. CLONT                              /00012501/ [Suspect]
     Active Substance: METRONIDAZOLE
     Dosage: 800 MG, UNKNOWN
     Route: 048
     Dates: start: 20160223
  6. ZYPREXA [Suspect]
     Active Substance: OLANZAPINE
     Indication: PRODUCT USED FOR UNKNOWN INDICATION
     Dosage: 5 MG, UNKNOWN
     Route: 048
     Dates: start: 20160222, end: 20160222
  7. CEFACLOR. [Suspect]
     Active Substance: CEFACLOR
     Indication: PRODUCT USED FOR UNKNOWN INDICATION
     Dosage: 500 MG, UNKNOWN
     Route: 048
     Dates: start: 20160222
  8. CLONT /00012501/ [Suspect]
     Active Substance: METRONIDAZOLE
     Indication: PRODUCT USED FOR UNKNOWN INDICATION
     Dosage: 400 MG, UNKNOWN
     Route: 048
     Dates: start: 20160222

REACTIONS (5)
  - Generalised tonic-clonic seizure [Recovered/Resolved]
  - Musculoskeletal pain [Unknown]
  - Fall [Unknown]
  - Tongue biting [Unknown]
  - Death [Fatal]

NARRATIVE: CASE EVENT DATE: 20160223
